FAERS Safety Report 5283385-6 (Version None)
Quarter: 2007Q2

REPORT INFORMATION
  Report Type: 
  Country: None (occurrence: None)
  Receive Date: 20070402
  Receipt Date: 20070319
  Transmission Date: 20071010
  Serious: Yes (Other)
  Sender: FDA-Public Use
  Company Number: CA-JNJFOC-20070200318

PATIENT
  Sex: Female
  Weight: 68 kg

DRUGS (4)
  1. REMICADE [Suspect]
     Indication: RHEUMATOID ARTHRITIS
     Route: 042
  2. METHOTREXATE [Concomitant]
     Indication: RHEUMATOID ARTHRITIS
     Dosage: DURATION= MANY YEARS
  3. FOLIC ACID [Concomitant]
  4. NAPROXEN [Concomitant]
     Indication: RHEUMATOID ARTHRITIS
     Dosage: DURATION= MANY YEARS
     Route: 048

REACTIONS (2)
  - OSTEOPOROSIS [None]
  - PELVIC FRACTURE [None]
